FAERS Safety Report 16765184 (Version 1)
Quarter: 2019Q3

REPORT INFORMATION
  Report Type: Spontaneous
  Country: US (occurrence: US)
  Receive Date: 20190903
  Receipt Date: 20190903
  Transmission Date: 20191005
  Serious: Yes (Other)
  Sender: FDA-Public Use
  Company Number: US-BRISTOL-MYERS SQUIBB COMPANY-BMS-2019-082924

PATIENT
  Age: 47 Year
  Sex: Female

DRUGS (1)
  1. ORENCIA [Suspect]
     Active Substance: ABATACEPT
     Indication: PRODUCT USED FOR UNKNOWN INDICATION
     Dosage: 1 DOSAGE FORM, QWK (125 MILLIGRAM/MILLILITER)
     Route: 058

REACTIONS (3)
  - Intra-abdominal fluid collection [Unknown]
  - Hernia [Unknown]
  - Skin mass [Unknown]

NARRATIVE: CASE EVENT DATE: 201908
